FAERS Safety Report 7381526-8 (Version None)
Quarter: 2011Q1

REPORT INFORMATION
  Report Type: 
  Country: None (occurrence: None)
  Receive Date: 20110322
  Receipt Date: 20110309
  Transmission Date: 20110831
  Serious: Yes (Hospitalization)
  Sender: FDA-Public Use
  Company Number: 029112

PATIENT
  Sex: Male
  Weight: 47.2 kg

DRUGS (7)
  1. NICODERM [Concomitant]
  2. B-12 LATINO [Concomitant]
  3. ACTONEL [Concomitant]
  4. CLARITIN-D [Concomitant]
  5. MV [Concomitant]
  6. CERTOLIZUMAB PEGOL [Suspect]
     Indication: CROHN'S DISEASE
     Dosage: (400 MG 1X/4 WEEKS SUBCUTANEOUS)
     Route: 058
     Dates: start: 20050127
  7. CALCIUM D /01272001/ [Concomitant]

REACTIONS (1)
  - PNEUMONIA BACTERIAL [None]
